FAERS Safety Report 7522329 (Version 2)
Quarter: 2013Q1

REPORT INFORMATION
  Report Type: Spontaneous
  Country: ES (occurrence: ES)
  Receive Date: 20100803
  Receipt Date: 20130320
  Transmission Date: 20140127
  Serious: Yes (Hospitalization, Other)
  Sender: FDA-Public Use
  Company Number: ES-ELI_LILLY_AND_COMPANY-ES201007006269

PATIENT
  Age: 78 Year
  Sex: Female
  Weight: 68 kg

DRUGS (4)
  1. FORSTEO [Suspect]
     Indication: OSTEOPOROSIS
     Dosage: 20 UG, DAILY (1/D)
     Route: 058
     Dates: start: 200912, end: 2010
  2. SEGURIL [Concomitant]
     Indication: RENAL FAILURE
     Dosage: 40 MG, DAILY (1/D)
     Route: 048
     Dates: end: 2010
  3. RABEPRAZOLE [Concomitant]
     Indication: PROPHYLAXIS
     Dosage: UNK, DAILY (1/D)
     Route: 048
     Dates: end: 2010
  4. DICLOFENACO /00372302/ [Concomitant]
     Indication: PAIN
     Dosage: 50 MG, EVERY 8 HRS
     Route: 048
     Dates: end: 2010

REACTIONS (4)
  - Vaginal cancer [Not Recovered/Not Resolved]
  - Terminal state [Not Recovered/Not Resolved]
  - Accidental overdose [Unknown]
  - Medication error [Unknown]
